FAERS Safety Report 8362022-8 (Version None)
Quarter: 2012Q2

REPORT INFORMATION
  Report Type: 
  Country: None (occurrence: None)
  Receive Date: 20120515
  Receipt Date: 20120502
  Transmission Date: 20120825
  Serious: Yes (Hospitalization)
  Sender: FDA-Public Use
  Company Number: HK-MYLANLABS-2012S1009486

PATIENT
  Age: 32 Year
  Sex: Male

DRUGS (4)
  1. KETAMINE HCL [Suspect]
     Indication: SUBSTANCE ABUSE
     Route: 065
  2. MIDAZOLAM [Suspect]
     Indication: SUBSTANCE ABUSE
     Route: 065
  3. FLUPHENAZINE DECANOATE [Concomitant]
     Indication: SCHIZOPHRENIA
     Dosage: DEPOT 25MG MONTHLY
     Route: 065
  4. DEXTROMETHORPHAN [Suspect]
     Indication: DRUG ABUSE
     Dosage: COUGH TABLETS 30 PER DAY

REACTIONS (3)
  - RHABDOMYOLYSIS [None]
  - SUBSTANCE ABUSE [None]
  - FOLATE DEFICIENCY [None]
